FAERS Safety Report 9908183 (Version 1)
Quarter: 2013Q2

REPORT INFORMATION
  Report Type: Spontaneous
  Country: US (occurrence: None)
  Receive Date: 20130305
  Receipt Date: 20130305
  Transmission Date: 20140414
  Serious: Yes (Other)
  Sender: FDA-Public Use
  Company Number: 163-21880-12121949

PATIENT
  Age: 71 Year
  Sex: Female

DRUGS (3)
  1. REVLIMID (LENALIDOMIDE) (5 MILLIGRAM, CAPSULES) [Suspect]
     Indication: CHRONIC LYMPHOCYTIC LEUKAEMIA
     Dosage: 5 MG, 1 IN 1 D, PO
     Route: 048
     Dates: start: 20080423
  2. BACTRIM (BACTRIM) (UNKNOWN) [Concomitant]
  3. VALTREX (VALACICLOVIR HYDROCHLORIDE) (UNKNOWN) [Concomitant]

REACTIONS (1)
  - Immune system disorder [None]
